FAERS Safety Report 25812327 (Version 3)
Quarter: 2025Q4

REPORT INFORMATION
  Report Type: Spontaneous
  Country: US (occurrence: US)
  Receive Date: 20250917
  Receipt Date: 20251104
  Transmission Date: 20260118
  Serious: Yes (Hospitalization, Other)
  Sender: SYNDAX
  Company Number: US-SYNDAX PHARMACEUTICALS, INC.-2025US000699

PATIENT
  Sex: Male
  Weight: 76.644 kg

DRUGS (1)
  1. REVUFORJ [Suspect]
     Active Substance: REVUMENIB CITRATE
     Indication: Product used for unknown indication
     Dosage: 270 MILLIGRAM, BID
     Route: 048

REACTIONS (7)
  - Intestinal obstruction [Unknown]
  - Weight decreased [Unknown]
  - Constipation [Unknown]
  - Medication error [Unknown]
  - Gastrointestinal tube insertion [Unknown]
  - Hospice care [Unknown]
  - Dry mouth [Unknown]
